FAERS Safety Report 9129298 (Version 1)
Quarter: 2013Q1

REPORT INFORMATION
  Report Type: Spontaneous
  Country: AU (occurrence: AU)
  Receive Date: 20130125
  Receipt Date: 20130125
  Transmission Date: 20140127
  Serious: Yes (Life-Threatening)
  Sender: FDA-Public Use
  Company Number: AU-ROCHE-1182183

PATIENT
  Age: 54 Year
  Sex: Female
  Weight: 55 kg

DRUGS (7)
  1. RIBAVIRIN [Suspect]
     Indication: HEPATIC CIRRHOSIS
     Route: 048
     Dates: start: 20120821
  2. RIBAVIRIN [Suspect]
     Route: 048
     Dates: start: 20121029
  3. RIBAVIRIN [Suspect]
     Route: 048
     Dates: start: 20121122, end: 20121125
  4. INTERFERON ALFA-2B [Suspect]
     Indication: HEPATIC CIRRHOSIS
     Route: 058
     Dates: start: 20120821, end: 20121120
  5. VICTRELIS [Suspect]
     Indication: PRODUCT USED FOR UNKNOWN INDICATION
     Route: 048
     Dates: start: 20120913, end: 20121125
  6. CENTRUM [Concomitant]
  7. FISH OIL [Concomitant]

REACTIONS (8)
  - Neutropenia [Recovered/Resolved]
  - Fatigue [Unknown]
  - Headache [Unknown]
  - Anaemia [Recovered/Resolved]
  - Sepsis [Recovered/Resolved]
  - Dizziness [Unknown]
  - Dyspnoea [Unknown]
  - Pallor [Unknown]
